FAERS Safety Report 6373882-4 (Version None)
Quarter: 2009Q3

REPORT INFORMATION
  Report Type: 
  Country: None (occurrence: None)
  Receive Date: 20090924
  Receipt Date: 20090508
  Transmission Date: 20100115
  Serious: No
  Sender: FDA-Public Use
  Company Number: US-ASTRAZENECA-2009UW11919

PATIENT
  Age: 43 Year
  Sex: Male

DRUGS (1)
  1. SEROQUEL XR [Suspect]
     Route: 048

REACTIONS (4)
  - AGITATION [None]
  - RESTLESS LEGS SYNDROME [None]
  - SLEEP DISORDER [None]
  - SOMNOLENCE [None]
